FAERS Safety Report 7702887-3 (Version None)
Quarter: 2011Q3

REPORT INFORMATION
  Report Type: 
  Country: None (occurrence: None)
  Receive Date: 20110823
  Receipt Date: 20110815
  Transmission Date: 20111222
  Serious: Yes (Other)
  Sender: FDA-Public Use
  Company Number: BR-BAYER-2011-032939

PATIENT
  Age: 35 Year
  Sex: Female

DRUGS (4)
  1. TRAMADOL HYDROCHLORIDE [Concomitant]
     Indication: BACK PAIN
     Dosage: 1 DF, IRR
     Route: 042
     Dates: start: 20110101, end: 20110101
  2. TILATIL [Concomitant]
     Indication: BACK PAIN
     Dosage: 1 DF, IRR
     Route: 042
     Dates: start: 20110101, end: 20110101
  3. SIBUTRAMINE HYDROCHLORIDE MONOHYDRATE [Concomitant]
     Indication: WEIGHT DECREASED
     Dosage: 10 MG, QD
     Route: 048
     Dates: start: 20101101, end: 20110101
  4. YASMIN [Suspect]
     Indication: CONTRACEPTION
     Dosage: UNK
     Route: 048
     Dates: start: 20100101, end: 20110303

REACTIONS (2)
  - CAESAREAN SECTION [None]
  - PREGNANCY ON ORAL CONTRACEPTIVE [None]
